FAERS Safety Report 16379556 (Version 1)
Quarter: 2019Q2

REPORT INFORMATION
  Report Type: Spontaneous
  Country: US (occurrence: US)
  Receive Date: 20190531
  Receipt Date: 20190531
  Transmission Date: 20190711
  Serious: Yes (Life-Threatening, Other)
  Sender: FDA-Public Use
  Company Number: US-NOVOPROD-664872

PATIENT
  Age: 64 Year
  Sex: Female

DRUGS (1)
  1. NOVOLOG MIX 70/30 [Suspect]
     Active Substance: INSULIN ASPART
     Indication: TYPE 2 DIABETES MELLITUS
     Dosage: 100 IU, BID
     Route: 058

REACTIONS (8)
  - Product storage error [Unknown]
  - Weight increased [Unknown]
  - Hypoglycaemic unconsciousness [Unknown]
  - Glycosylated haemoglobin increased [Unknown]
  - Diabetic retinopathy [Unknown]
  - Vocal cord disorder [Unknown]
  - Therapeutic product effect delayed [Unknown]
  - Blood glucose increased [Unknown]

NARRATIVE: CASE EVENT DATE: 2018
